FAERS Safety Report 17301097 (Version 7)
Quarter: 2024Q2

REPORT INFORMATION
  Report Type: Spontaneous
  Country: US (occurrence: US)
  Receive Date: 20200122
  Receipt Date: 20240429
  Transmission Date: 20240716
  Serious: Yes (Other)
  Sender: FDA-Public Use
  Company Number: US-PFIZER INC-2020027897

PATIENT
  Age: 67 Year
  Sex: Female

DRUGS (1)
  1. XELJANZ XR [Suspect]
     Active Substance: TOFACITINIB CITRATE
     Indication: Rheumatoid arthritis
     Dosage: 11 MG, 1X/DAY
     Route: 048

REACTIONS (5)
  - Osteoarthritis [Unknown]
  - Rotator cuff syndrome [Unknown]
  - Rheumatoid arthritis [Not Recovered/Not Resolved]
  - Musculoskeletal discomfort [Unknown]
  - Microangiopathy [Not Recovered/Not Resolved]

NARRATIVE: CASE EVENT DATE: 20191201
